FAERS Safety Report 10408512 (Version 1)
Quarter: 2014Q3

REPORT INFORMATION
  Report Type: Spontaneous
  Country: US (occurrence: None)
  Receive Date: 20140825
  Receipt Date: 20140825
  Transmission Date: 20150326
  Serious: Yes (Hospitalization)
  Sender: FDA-Public Use
  Company Number: None

PATIENT
  Age: 54 Year
  Sex: Male

DRUGS (1)
  1. CETUXIMAB [Suspect]
     Active Substance: CETUXIMAB

REACTIONS (4)
  - Oropharyngeal pain [None]
  - Failure to thrive [None]
  - Oral pain [None]
  - Eating disorder [None]

NARRATIVE: CASE EVENT DATE: 20140728
